FAERS Safety Report 13613581 (Version 1)
Quarter: 2017Q2

REPORT INFORMATION
  Report Type: Spontaneous
  Country: US (occurrence: US)
  Receive Date: 20170605
  Receipt Date: 20170605
  Transmission Date: 20170830
  Serious: No
  Sender: FDA-Public Use
  Company Number: US-ASTRAZENECA-2017SE58221

PATIENT
  Age: 18652 Day
  Sex: Female
  Weight: 79.8 kg

DRUGS (1)
  1. LYNPARZA [Suspect]
     Active Substance: OLAPARIB
     Indication: OVARIAN CANCER
     Route: 048
     Dates: start: 201609

REACTIONS (3)
  - Peripheral swelling [Unknown]
  - Paraesthesia [Unknown]
  - Flank pain [Unknown]

NARRATIVE: CASE EVENT DATE: 20170519
